FAERS Safety Report 8200020-5 (Version None)
Quarter: 2012Q1

REPORT INFORMATION
  Report Type: 
  Country: None (occurrence: None)
  Receive Date: 20120312
  Receipt Date: 20120309
  Transmission Date: 20120608
  Serious: Yes (Other)
  Sender: FDA-Public Use
  Company Number: US-PFIZER INC-2012063559

PATIENT
  Sex: Male
  Weight: 104.31 kg

DRUGS (2)
  1. LIPITOR [Suspect]
     Indication: BLOOD CHOLESTEROL INCREASED
     Dosage: UNK
     Route: 048
  2. ZOCOR [Suspect]
     Indication: BLOOD CHOLESTEROL INCREASED
     Dosage: UNK

REACTIONS (3)
  - DIABETES MELLITUS [None]
  - CLUSTER HEADACHE [None]
  - BLOOD CHOLESTEROL ABNORMAL [None]
